FAERS Safety Report 7459802-X (Version None)
Quarter: 2011Q2

REPORT INFORMATION
  Report Type: 
  Country: None (occurrence: None)
  Receive Date: 20110505
  Receipt Date: 20110502
  Transmission Date: 20111010
  Serious: No
  Sender: FDA-Public Use
  Company Number: US-PFIZER INC-2011094821

PATIENT
  Sex: Female
  Weight: 62 kg

DRUGS (3)
  1. HYDROMORPHONE HCL [Suspect]
     Indication: PAIN
     Dosage: 2 MG, UNK
     Route: 048
     Dates: end: 20110501
  2. CODEINE [Suspect]
     Indication: PAIN
     Dosage: UNK
     Route: 048
  3. ZYVOX [Suspect]
     Indication: PAIN
     Dosage: 600 MG, 2X/DAY
     Route: 048
     Dates: start: 20110428

REACTIONS (2)
  - NAUSEA [None]
  - DIZZINESS [None]
